FAERS Safety Report 11595818 (Version 2)
Quarter: 2015Q4

REPORT INFORMATION
  Report Type: Report from Study
  Country: MX (occurrence: MX)
  Receive Date: 20151006
  Receipt Date: 20151102
  Transmission Date: 20160304
  Serious: Yes (Other)
  Sender: FDA-Public Use
  Company Number: PHHY2015MX119512

PATIENT
  Sex: Male

DRUGS (3)
  1. RITALIN LA [Suspect]
     Active Substance: METHYLPHENIDATE HYDROCHLORIDE
     Indication: ATTENTION DEFICIT/HYPERACTIVITY DISORDER
     Dosage: 1 DF (10 MG), BID (1 IN THE MORNING AND 1 IN THE AFTERNOON)
     Route: 065
     Dates: end: 201506
  2. RITALIN LA [Suspect]
     Active Substance: METHYLPHENIDATE HYDROCHLORIDE
     Dosage: 1 DF (10 MG), BID (1 IN THE MORNING AND 1 IN THE AFTERNOON)
     Route: 065
     Dates: start: 201508
  3. RITALIN LA [Suspect]
     Active Substance: METHYLPHENIDATE HYDROCHLORIDE
     Dosage: 2 DF (20 MG), QD
     Route: 065
     Dates: start: 201506, end: 201507

REACTIONS (5)
  - Drug ineffective [Unknown]
  - Drug intolerance [Unknown]
  - Decreased appetite [Unknown]
  - Dengue fever [Recovered/Resolved]
  - Aggression [Unknown]

NARRATIVE: CASE EVENT DATE: 2015
